FAERS Safety Report 6626021-6 (Version None)
Quarter: 2010Q1

REPORT INFORMATION
  Report Type: 
  Country: None (occurrence: None)
  Receive Date: 20100310
  Receipt Date: 20100302
  Transmission Date: 20100710
  Serious: No
  Sender: FDA-Public Use
  Company Number: CA-BAYER-200941630NA

PATIENT
  Age: 89 Year
  Sex: Female
  Weight: 37 kg

DRUGS (8)
  1. AVELOX [Suspect]
     Indication: INFLUENZA
     Route: 048
     Dates: start: 20091127, end: 20091128
  2. VERAPAMIL [Concomitant]
  3. RANITIDINE [Concomitant]
  4. VENLAFAXINE [Concomitant]
  5. ARTHROTEC [Concomitant]
  6. PERCOCET [Concomitant]
     Dosage: THREE TIMES A DAY
  7. PLAVIX [Concomitant]
  8. RESTORIL [Concomitant]
     Dosage: AT BED TIME

REACTIONS (4)
  - HYPERSENSITIVITY [None]
  - OEDEMA MOUTH [None]
  - RASH MACULAR [None]
  - SWELLING FACE [None]
